FAERS Safety Report 9753601 (Version 1)
Quarter: 2013Q4

REPORT INFORMATION
  Report Type: Spontaneous
  Country: US (occurrence: None)
  Receive Date: 20131211
  Receipt Date: 20131211
  Transmission Date: 20140711
  Serious: Yes (Life-Threatening, Hospitalization)
  Sender: FDA-Public Use
  Company Number: 2013AP010221

PATIENT
  Age: 47 Year
  Sex: Female
  Weight: 110 kg

DRUGS (3)
  1. AMLODIPINE BESYLATE TABLETS [Suspect]
     Dosage: TOTAL
     Route: 048
  2. ZIPRASIDONE [Concomitant]
  3. PREGABALIN [Concomitant]

REACTIONS (5)
  - Haemodynamic instability [None]
  - Shock [None]
  - Hyperlipidaemia [None]
  - Hypoxia [None]
  - Overdose [None]
